FAERS Safety Report 18841202 (Version 1)
Quarter: 2021Q1

REPORT INFORMATION
  Report Type: Spontaneous
  Country: US (occurrence: US)
  Receive Date: 20210204
  Receipt Date: 20210204
  Transmission Date: 20210419
  Serious: No
  Sender: FDA-Public Use
  Company Number: US-AMGEN-USASP2021017344

PATIENT
  Sex: Female

DRUGS (17)
  1. METHYLENE BLUE. [Concomitant]
     Active Substance: METHYLENE BLUE
  2. ALINIA [Concomitant]
     Active Substance: NITAZOXANIDE
  3. KEYTRUDA [Concomitant]
     Active Substance: PEMBROLIZUMAB
  4. LASIX [Concomitant]
     Active Substance: FUROSEMIDE
  5. DMSA [Concomitant]
     Active Substance: SUCCIMER
  6. SPIRONOLACTONE. [Concomitant]
     Active Substance: SPIRONOLACTONE
  7. MINOCYCLINE HYDROCHLORIDE. [Concomitant]
     Active Substance: MINOCYCLINE HYDROCHLORIDE
  8. NP THYROID [Concomitant]
     Active Substance: LEVOTHYROXINE\LIOTHYRONINE
  9. METFORMIN HYDROCHLORIDE. [Concomitant]
     Active Substance: METFORMIN HYDROCHLORIDE
  10. ONDANSETRON [Concomitant]
     Active Substance: ONDANSETRON
  11. DEXAMETHASONE. [Concomitant]
     Active Substance: DEXAMETHASONE
  12. EDTA [EDETIC ACID] [Concomitant]
  13. CYCLOPHOSPHAMIDE. [Concomitant]
     Active Substance: CYCLOPHOSPHAMIDE
  14. NPLATE [Suspect]
     Active Substance: ROMIPLOSTIM
     Indication: PRODUCT USED FOR UNKNOWN INDICATION
     Dosage: UNK
     Route: 065
     Dates: start: 20210121
  15. METOCLOPRAMIDE HCL [Concomitant]
     Active Substance: METOCLOPRAMIDE HYDROCHLORIDE
  16. VALTREX [Concomitant]
     Active Substance: VALACYCLOVIR HYDROCHLORIDE
  17. DMPS [Concomitant]
     Active Substance: 2,3-DIMERCAPTO-1-PROPANESULFONIC ACID

REACTIONS (2)
  - Pruritus [Unknown]
  - Feeling abnormal [Unknown]
